FAERS Safety Report 16350259 (Version 2)
Quarter: 2019Q3

REPORT INFORMATION
  Report Type: Spontaneous
  Country: RO (occurrence: RO)
  Receive Date: 20190524
  Receipt Date: 20190927
  Transmission Date: 20191004
  Serious: Yes (Hospitalization, Other)
  Sender: FDA-Public Use
  Company Number: RO-SUN PHARMACEUTICAL INDUSTRIES LTD-2019R1-208596

PATIENT
  Age: 26 Day
  Sex: Male
  Weight: 3.08 kg

DRUGS (4)
  1. PARACETAMOL [Suspect]
     Active Substance: ACETAMINOPHEN
     Indication: BODY TEMPERATURE INCREASED
     Dosage: 1.5 MILLILITER, UNK
     Route: 065
  2. METHYLDOPA. [Suspect]
     Active Substance: METHYLDOPA
     Indication: HYPERTENSION
     Dosage: UNK
     Route: 064
  3. BERBERINE [Suspect]
     Active Substance: BERBERINE
     Indication: PRODUCT USED FOR UNKNOWN INDICATION
     Dosage: NATURAL SYRUP BASED ON PLANT EXTRACTS
     Route: 065
  4. PHYTOMENADIONE [Suspect]
     Active Substance: PHYTONADIONE
     Indication: HAEMORRHAGE PROPHYLAXIS
     Dosage: UNK
     Route: 065

REACTIONS (5)
  - Foetal exposure during pregnancy [Unknown]
  - Premature baby [Unknown]
  - Haemolytic anaemia [Unknown]
  - Kernicterus [Recovering/Resolving]
  - Haemolysis [Recovering/Resolving]
